FAERS Safety Report 6783327-8 (Version None)
Quarter: 2010Q2

REPORT INFORMATION
  Report Type: 
  Country: None (occurrence: None)
  Receive Date: 20100622
  Receipt Date: 20100611
  Transmission Date: 20101027
  Serious: Yes (Other)
  Sender: FDA-Public Use
  Company Number: US-SANOFI-AVENTIS-2010SA022227

PATIENT
  Age: 73 Year
  Sex: Male
  Weight: 95.45 kg

DRUGS (7)
  1. MULTAQ [Suspect]
     Indication: ATRIAL FIBRILLATION
     Route: 048
     Dates: start: 20091201, end: 20100408
  2. MULTAQ [Suspect]
     Route: 048
  3. WARFARIN [Concomitant]
     Route: 065
  4. METOPROLOL TARTRATE [Concomitant]
  5. METOPROLOL TARTRATE [Concomitant]
  6. BENICAR [Concomitant]
  7. LIPITOR [Concomitant]

REACTIONS (2)
  - ATRIAL FIBRILLATION [None]
  - RASH PRURITIC [None]
